FAERS Safety Report 7761796-4 (Version None)
Quarter: 2011Q3

REPORT INFORMATION
  Report Type: 
  Country: None (occurrence: None)
  Receive Date: 20110920
  Receipt Date: 20110915
  Transmission Date: 20111222
  Serious: Yes (Hospitalization)
  Sender: FDA-Public Use
  Company Number: PHHO2011DE14864

PATIENT
  Sex: Male
  Weight: 95 kg

DRUGS (4)
  1. CARBOPLATIN [Suspect]
     Indication: LARGE CELL CARCINOMA OF THE RESPIRATORY TRACT STAGE UNSPECIFIED
     Dosage: 518 MG, UNK
     Route: 042
     Dates: start: 20110817, end: 20110817
  2. AFINITOR [Suspect]
     Dosage: 5 MG, QD
     Route: 048
     Dates: start: 20110909
  3. PACLITAXEL [Suspect]
     Indication: LARGE CELL CARCINOMA OF THE RESPIRATORY TRACT STAGE UNSPECIFIED
     Dosage: 350 MG, UNK
     Route: 042
     Dates: start: 20110817, end: 20110817
  4. AFINITOR [Suspect]
     Indication: LARGE CELL CARCINOMA OF THE RESPIRATORY TRACT STAGE UNSPECIFIED
     Dosage: 5 MG, QD
     Route: 048
     Dates: start: 20110817, end: 20110830

REACTIONS (1)
  - FEBRILE NEUTROPENIA [None]
